FAERS Safety Report 5002860-2 (Version None)
Quarter: 2006Q2

REPORT INFORMATION
  Report Type: 
  Country: None (occurrence: None)
  Receive Date: 20060512
  Receipt Date: 20060427
  Transmission Date: 20061013
  Serious: Yes (Other)
  Sender: FDA-Public Use
  Company Number: GB200604004707

PATIENT
  Age: 22 Year
  Sex: Male

DRUGS (2)
  1. ZYPREXA [Suspect]
     Indication: AGGRESSION
     Dosage: 10 MG, INTRAMUSCULAR
     Route: 030
     Dates: start: 20060401, end: 20060401
  2. LORAZEPAM [Concomitant]

REACTIONS (1)
  - RESPIRATORY DEPRESSION [None]
